FAERS Safety Report 17699235 (Version 8)
Quarter: 2020Q3

REPORT INFORMATION
  Report Type: Spontaneous
  Country: US (occurrence: US)
  Receive Date: 20200423
  Receipt Date: 20200908
  Transmission Date: 20201102
  Serious: No
  Sender: FDA-Public Use
  Company Number: US-PHARMING-PHAUS2019000090

PATIENT

DRUGS (5)
  1. RUCONEST [Suspect]
     Active Substance: HUMAN C1-ESTERASE INHIBITOR
     Dosage: 3250 IU INTERNATIONAL UNIT(S), THREE TIMES WEEKLY AS NEEDED
     Route: 042
     Dates: start: 2018
  2. RUCONEST [Suspect]
     Active Substance: HUMAN C1-ESTERASE INHIBITOR
     Dosage: 3250 IU, AS NEEDED
     Route: 042
     Dates: start: 20200729
  3. RUCONEST [Suspect]
     Active Substance: HUMAN C1-ESTERASE INHIBITOR
     Dosage: 3250 IU, AS NEEDED
     Route: 042
     Dates: start: 20180619
  4. RUCONEST [Suspect]
     Active Substance: HUMAN C1-ESTERASE INHIBITOR
     Indication: HEREDITARY ANGIOEDEMA
     Dosage: 3250 IU INTERNATIONAL UNIT(S), THREE TIMES A WEEK
     Route: 042
  5. RUCONEST [Suspect]
     Active Substance: HUMAN C1-ESTERASE INHIBITOR
     Dosage: 3250 IU, AS NEEDED
     Route: 042
     Dates: start: 20200729

REACTIONS (3)
  - Hereditary angioedema [Unknown]
  - Dental care [Unknown]
  - Drug ineffective [Unknown]
